FAERS Safety Report 20476472 (Version 2)
Quarter: 2022Q2

REPORT INFORMATION
  Report Type: Report from Study
  Country: US (occurrence: US)
  Receive Date: 20220215
  Receipt Date: 20220406
  Transmission Date: 20220721
  Serious: No
  Sender: FDA-Public Use
  Company Number: US-NOVARTISTESTPH-NVSC2022US035033

PATIENT
  Age: 63 Year
  Sex: Male

DRUGS (4)
  1. ENTRESTO [Suspect]
     Active Substance: SACUBITRIL\VALSARTAN
     Indication: Product used for unknown indication
     Dosage: 200 MG (97/103 MG)
     Route: 048
     Dates: start: 202107
  2. ENTRESTO [Suspect]
     Active Substance: SACUBITRIL\VALSARTAN
     Dosage: 100 MG, BID (49/52 MG)
     Route: 048
  3. SOTALOL [Concomitant]
     Active Substance: SOTALOL
     Indication: Product used for unknown indication
     Dosage: 80 MG, QD
     Route: 065
  4. SOTALOL [Concomitant]
     Active Substance: SOTALOL
     Dosage: 120 MG, QD
     Route: 065

REACTIONS (2)
  - Palpitations [Unknown]
  - Hypotension [Unknown]

NARRATIVE: CASE EVENT DATE: 20211201
